FAERS Safety Report 10736795 (Version 1)
Quarter: 2015Q1

REPORT INFORMATION
  Report Type: Spontaneous
  Country: US (occurrence: None)
  Receive Date: 20150123
  Receipt Date: 20150123
  Transmission Date: 20150721
  Serious: No
  Sender: FDA-Public Use
  Company Number: None

PATIENT
  Age: 23 Year
  Sex: Female
  Weight: 74.84 kg

DRUGS (3)
  1. LIDOCAINE. [Suspect]
     Active Substance: LIDOCAINE
     Indication: ANAESTHESIA PROCEDURE
     Dosage: 2 ML INJECTION, PRIOR TO PROCEDURE
     Route: 030
     Dates: start: 20150121
  2. BUPIVACAINE [Suspect]
     Active Substance: BUPIVACAINE
  3. PORTEX SPINAL TRAY 2ML NLD-15597-20 [Suspect]
     Active Substance: DEVICE

REACTIONS (2)
  - Drug ineffective [None]
  - Anaesthetic complication [None]

NARRATIVE: CASE EVENT DATE: 20150121
